FAERS Safety Report 7356538-0 (Version None)
Quarter: 2011Q1

REPORT INFORMATION
  Report Type: 
  Country: None (occurrence: None)
  Receive Date: 20110316
  Receipt Date: 20110302
  Transmission Date: 20110831
  Serious: Yes (Hospitalization, Disabling, Other)
  Sender: FDA-Public Use
  Company Number: PHBS2007JP07258

PATIENT
  Sex: Male

DRUGS (19)
  1. NEORAL [Suspect]
     Indication: HEART TRANSPLANT
     Dosage: 90 MG/DAY
     Route: 048
     Dates: start: 19900428
  2. NEORAL [Interacting]
     Dosage: 10 MG/DAY
     Route: 048
     Dates: start: 20070424, end: 20071203
  3. CERTICAN [Interacting]
     Dosage: 1.5 MG/DAY
     Route: 048
     Dates: start: 20070501, end: 20070530
  4. ANTIMICROBIAL AGENT [Suspect]
  5. CERTICAN [Interacting]
     Dosage: 1.5 MG/DAY
     Route: 048
     Dates: start: 20070427, end: 20070506
  6. CERTICAN [Interacting]
     Dosage: 3 MG/DAY
     Route: 048
     Dates: start: 20071101, end: 20080220
  7. CERTICAN [Interacting]
     Dosage: 1.25 MG/DAY
     Route: 048
     Dates: start: 20080620
  8. PREDONINE [Concomitant]
     Indication: HEART TRANSPLANT
     Dosage: 2.5 MG
     Route: 048
     Dates: start: 20060824
  9. CERTICAN [Interacting]
     Dosage: 1 MG/DAY
     Route: 048
     Dates: start: 20070507, end: 20070501
  10. CERTICAN [Interacting]
     Dosage: 2.5 MG/D
     Route: 048
     Dates: start: 20070802, end: 20071031
  11. CERTICAN [Interacting]
     Dosage: 1.5 MG/DAY
     Route: 048
     Dates: start: 20080221, end: 20080619
  12. CERTICAN [Interacting]
     Indication: HEART TRANSPLANT
     Dosage: 1.5 MG/DAY
     Route: 048
     Dates: start: 20070421, end: 20070422
  13. RENIVACE [Concomitant]
     Indication: HYPERTENSION
     Dosage: 1.5 MG
     Route: 048
     Dates: start: 20060616, end: 20060823
  14. NEORAL [Interacting]
     Dosage: 70 MG/DAY
     Route: 048
     Dates: start: 20070420, end: 20070420
  15. NEORAL [Interacting]
     Dosage: 25 MG/DAY
     Route: 048
     Dates: start: 20060714
  16. NEORAL [Interacting]
     Dosage: 25 MG/DAY
     Route: 048
     Dates: start: 20070420, end: 20070423
  17. CERTICAN [Interacting]
     Dosage: 1 MG/DAY
     Route: 048
     Dates: start: 20070423, end: 20070426
  18. CERTICAN [Interacting]
     Dosage: 2 MG/DAY
     Route: 048
     Dates: start: 20070531, end: 20070801
  19. CELLCEPT [Concomitant]
     Indication: HEART TRANSPLANT
     Dosage: 500 MG
     Route: 048
     Dates: start: 20071217

REACTIONS (15)
  - RENAL DISORDER [None]
  - CARDIAC FAILURE [None]
  - GAMMA-GLUTAMYLTRANSFERASE INCREASED [None]
  - IMMUNOSUPPRESSANT DRUG LEVEL DECREASED [None]
  - RENAL IMPAIRMENT [None]
  - BLOOD UREA INCREASED [None]
  - DRUG INTERACTION [None]
  - IMMUNOSUPPRESSANT DRUG LEVEL INCREASED [None]
  - BRONCHOPULMONARY ASPERGILLOSIS [None]
  - NEPHROPATHY [None]
  - C-REACTIVE PROTEIN INCREASED [None]
  - RENAL FAILURE [None]
  - BLOOD CREATININE INCREASED [None]
  - HAEMOPTYSIS [None]
  - CORONARY ARTERY STENOSIS [None]
